FAERS Safety Report 11166260 (Version 2)
Quarter: 2015Q2

REPORT INFORMATION
  Report Type: Report from Study
  Country: DE (occurrence: DE)
  Receive Date: 20150605
  Receipt Date: 20150616
  Transmission Date: 20150821
  Serious: Yes (Other)
  Sender: FDA-Public Use
  Company Number: DE-ROCHE-1587186

PATIENT
  Age: 25 Year
  Sex: Female
  Weight: 54 kg

DRUGS (4)
  1. OMALIZUMAB [Suspect]
     Active Substance: OMALIZUMAB
     Indication: URTICARIA CHRONIC
     Route: 058
     Dates: start: 201407
  2. OMALIZUMAB [Suspect]
     Active Substance: OMALIZUMAB
     Route: 058
     Dates: start: 201408
  3. FEXOFENADINE [Suspect]
     Active Substance: FEXOFENADINE\FEXOFENADINE HYDROCHLORIDE
     Indication: URTICARIA CHRONIC
     Dosage: 1-1 (BEFORE THE START OF PREGNANCY UP TO 4/ DAY)
     Route: 048
     Dates: start: 201402
  4. FOLSAURE [Concomitant]
     Active Substance: FOLIC ACID

REACTIONS (3)
  - Overdose [Unknown]
  - Maternal exposure during pregnancy [Unknown]
  - Abortion incomplete [Unknown]

NARRATIVE: CASE EVENT DATE: 20150320
